FAERS Safety Report 5794631-4 (Version None)
Quarter: 2008Q2

REPORT INFORMATION
  Report Type: 
  Country: None (occurrence: None)
  Receive Date: 20080627
  Receipt Date: 20080627
  Transmission Date: 20081010
  Serious: Yes (Hospitalization)
  Sender: FDA-Public Use
  Company Number: None

PATIENT
  Sex: Male
  Weight: 77.1115 kg

DRUGS (1)
  1. VICODIN [Suspect]
     Indication: BACK INJURY
     Dosage: PO  STARTED 2 WEEKS PRIOR TO ER VISIT
     Route: 048

REACTIONS (1)
  - HYPERSENSITIVITY [None]
